FAERS Safety Report 5754843-2 (Version None)
Quarter: 2008Q2

REPORT INFORMATION
  Report Type: 
  Country: None (occurrence: None)
  Receive Date: 20080527
  Receipt Date: 20080507
  Transmission Date: 20081010
  Serious: Yes (Hospitalization)
  Sender: FDA-Public Use
  Company Number: WAES 0805USA03720

PATIENT
  Age: 59 Year
  Sex: Male

DRUGS (8)
  1. PRINIVIL [Suspect]
     Indication: HYPERTENSION
     Dosage: 10 MG/ PO
     Route: 048
     Dates: start: 20030602, end: 20050926
  2. INFUSION (FORM) CETUXIMAB [Suspect]
     Indication: COLORECTAL CANCER METASTATIC
     Dosage: 250 MG/M[2]/WKY IV
     Route: 042
     Dates: start: 20050716, end: 20050921
  3. INFUSION (FORM) IRINOTECAN HYDROCHLORIDE [Suspect]
     Indication: COLORECTAL CANCER METASTATIC
     Dosage: 108 MG/M [2] /2XW IV
     Route: 042
     Dates: start: 20050716, end: 20050921
  4. INFUSION (FORM) FOLINIC ACID [Suspect]
     Indication: COLORECTAL CANCER METASTATIC
     Dosage: 400 MG/M [2] /2XW IV
     Route: 042
     Dates: start: 20050716, end: 20050921
  5. INFUSION (FORM) FLUOROURACIL [Suspect]
     Indication: COLORECTAL CANCER METASTATIC
     Dosage: 1680 MG/M [2] /2XW IV
     Route: 042
     Dates: start: 20050716, end: 20050921
  6. PRAVASTATIN SODIUM [Suspect]
     Indication: HYPERTENSION
     Dosage: 5 MG/
     Dates: start: 20030602, end: 20050926
  7. ASPIRIN [Suspect]
     Indication: CARDIOVASCULAR EVENT PROPHYLAXIS
     Dosage: 100 MG/
     Dates: start: 20030602, end: 20050926
  8. TENORMIN [Suspect]
     Indication: HYPERTENSION
     Dosage: 50 MG/
     Dates: start: 20030602, end: 20050926

REACTIONS (4)
  - DUODENAL ULCER [None]
  - GASTRIC ULCER [None]
  - GASTROINTESTINAL HAEMORRHAGE [None]
  - HAEMOGLOBIN DECREASED [None]
